FAERS Safety Report 8773257 (Version 1)
Quarter: 2012Q4

REPORT INFORMATION
  Report Type: 
  Country: DK (occurrence: DK)
  Receive Date: 20120905
  Receipt Date: 20120905
  Transmission Date: 20130627
  Serious: Yes (Other)
  Sender: FDA-Public Use
  Company Number: PHHY2012DK075237

PATIENT
  Age: 31 Year
  Sex: Female

DRUGS (1)
  1. LINDYNETTE [Suspect]
     Indication: CONTRACEPTION
     Dates: start: 2005

REACTIONS (10)
  - Joint lock [Unknown]
  - Cartilage injury [Unknown]
  - Arthralgia [Not Recovered/Not Resolved]
  - Deep vein thrombosis [Recovered/Resolved]
  - Pain in extremity [Unknown]
  - Oedema peripheral [Unknown]
  - Erythema [Unknown]
  - Hypoaesthesia [Not Recovered/Not Resolved]
  - Fall [Not Recovered/Not Resolved]
  - Muscle disorder [Not Recovered/Not Resolved]
